FAERS Safety Report 13417261 (Version 1)
Quarter: 2017Q2

REPORT INFORMATION
  Report Type: Spontaneous
  Country: US (occurrence: US)
  Receive Date: 20170406
  Receipt Date: 20170406
  Transmission Date: 20170830
  Serious: Yes (Other)
  Sender: FDA-Public Use
  Company Number: US-GLAXOSMITHKLINE-US2017048310

PATIENT
  Age: 49 Year
  Sex: Female

DRUGS (1)
  1. BENLYSTA [Suspect]
     Active Substance: BELIMUMAB
     Indication: SYSTEMIC LUPUS ERYTHEMATOSUS
     Dosage: UNK UNK, CYC Q MONTH
     Route: 042
     Dates: start: 201611

REACTIONS (13)
  - Arthralgia [Unknown]
  - Drug effect incomplete [Unknown]
  - Infusion related reaction [Unknown]
  - Drug ineffective [Unknown]
  - Cardiac flutter [Unknown]
  - Pain [Unknown]
  - Dizziness [Recovered/Resolved]
  - Nervousness [Unknown]
  - Somnolence [Unknown]
  - Palpitations [Unknown]
  - Feeling cold [Unknown]
  - Dry mouth [Unknown]
  - Chest discomfort [Unknown]

NARRATIVE: CASE EVENT DATE: 201611
